FAERS Safety Report 6509537-2 (Version None)
Quarter: 2009Q4

REPORT INFORMATION
  Report Type: 
  Country: None (occurrence: None)
  Receive Date: 20091222
  Receipt Date: 20091215
  Transmission Date: 20100525
  Serious: Yes (Death)
  Sender: FDA-Public Use
  Company Number: US-CELGENEUS-163-21880-09101953

PATIENT
  Sex: Female

DRUGS (5)
  1. REVLIMID [Suspect]
     Indication: MULTIPLE MYELOMA
     Route: 048
     Dates: start: 20090501, end: 20090901
  2. THALOMID [Suspect]
     Indication: MULTIPLE MYELOMA
     Route: 048
     Dates: start: 20091001, end: 20090101
  3. THALOMID [Suspect]
     Dosage: 200-100MG
     Route: 048
     Dates: start: 20060801
  4. THALOMID [Suspect]
     Route: 048
     Dates: start: 20080201
  5. THALOMID [Suspect]
     Dosage: 100-200MG
     Route: 048
     Dates: start: 20090201

REACTIONS (2)
  - DEATH [None]
  - DISEASE PROGRESSION [None]
